FAERS Safety Report 8773448 (Version 1)
Quarter: 2012Q4

REPORT INFORMATION
  Report Type: Report from Study
  Country: JP (occurrence: JP)
  Receive Date: 20120907
  Receipt Date: 20120907
  Transmission Date: 20130627
  Serious: Yes (Hospitalization)
  Sender: FDA-Public Use
  Company Number: JP-B.I. PHARMACEUTICALS,INC./RIDGEFIELD-2012-BP-13713NB

PATIENT
  Age: 84 Year
  Sex: Male

DRUGS (9)
  1. PRADAXA [Suspect]
     Indication: THROMBOSIS PROPHYLAXIS
     Dosage: 220 mg
     Route: 048
     Dates: start: 20120114, end: 20120204
  2. DIOVAN [Suspect]
     Dosage: 80 mg
     Route: 048
     Dates: end: 20120204
  3. HARNAL [Concomitant]
     Dosage: 0.2 mg
     Route: 048
     Dates: end: 20120204
  4. FERROMIA [Concomitant]
     Dosage: 50 mg
     Route: 048
     Dates: end: 20120204
  5. MUCOTRON [Concomitant]
     Dosage: 750 mg
     Route: 048
     Dates: end: 20120204
  6. RINDERON-VG [Concomitant]
     Route: 062
     Dates: end: 20120204
  7. NERIPROCT [Concomitant]
     Route: 054
     Dates: end: 20120204
  8. LOXONIN [Concomitant]
     Route: 062
     Dates: end: 20120204
  9. HIRUDOID [Concomitant]
     Route: 062
     Dates: end: 20120204

REACTIONS (2)
  - Iron deficiency anaemia [Unknown]
  - Renal impairment [Unknown]
